FAERS Safety Report 21197045 (Version 1)
Quarter: 2022Q3

REPORT INFORMATION
  Report Type: Spontaneous
  Country: US (occurrence: US)
  Receive Date: 20220810
  Receipt Date: 20220810
  Transmission Date: 20221026
  Serious: No
  Sender: FDA-Public Use
  Company Number: US-BAYER-2022A109118

PATIENT
  Age: 67 Year
  Sex: Male

DRUGS (1)
  1. KERENDIA [Suspect]
     Active Substance: FINERENONE
     Dosage: UNK
     Dates: start: 20220307, end: 202207

REACTIONS (2)
  - Blood creatinine increased [None]
  - Glomerular filtration rate decreased [None]

NARRATIVE: CASE EVENT DATE: 20220101
